FAERS Safety Report 9132486 (Version 3)
Quarter: 2013Q3

REPORT INFORMATION
  Report Type: Spontaneous
  Country: US (occurrence: US)
  Receive Date: 20130120
  Receipt Date: 20130826
  Transmission Date: 20140515
  Serious: Yes (Disabling, Other)
  Sender: FDA-Public Use
  Company Number: US-009507513-1301USA007709

PATIENT
  Sex: Female

DRUGS (2)
  1. FOSAMAX [Suspect]
     Indication: OSTEOPOROSIS
     Dosage: UNK
     Route: 048
     Dates: start: 200912, end: 2009
  2. RECLAST [Concomitant]
     Indication: OSTEOPOROSIS
     Dosage: INFUSION NOT LESS THAN 15 MINUTES
     Route: 042
     Dates: start: 20090717

REACTIONS (24)
  - Infection [Not Recovered/Not Resolved]
  - Tooth loss [Not Recovered/Not Resolved]
  - Generalised oedema [Unknown]
  - Joint instability [Unknown]
  - Chills [Unknown]
  - Loose tooth [Unknown]
  - Pyrexia [Unknown]
  - Pain in extremity [Not Recovered/Not Resolved]
  - Musculoskeletal pain [Not Recovered/Not Resolved]
  - Pain in jaw [Not Recovered/Not Resolved]
  - Pain in extremity [Not Recovered/Not Resolved]
  - Joint swelling [Unknown]
  - Abdominal discomfort [Not Recovered/Not Resolved]
  - Rash [Not Recovered/Not Resolved]
  - Dysphagia [Unknown]
  - Abdominal distension [Unknown]
  - Local swelling [Unknown]
  - Muscular weakness [Unknown]
  - Finger deformity [Unknown]
  - Erythema [Unknown]
  - Skin exfoliation [Unknown]
  - Erythema [Unknown]
  - Local swelling [Unknown]
  - Pain in extremity [Unknown]
